FAERS Safety Report 16197400 (Version 1)
Quarter: 2019Q2

REPORT INFORMATION
  Report Type: Spontaneous
  Country: US (occurrence: US)
  Receive Date: 20190413
  Receipt Date: 20190413
  Transmission Date: 20190711
  Serious: Yes (Other)
  Sender: FDA-Public Use
  Company Number: None

PATIENT
  Age: 43 Year
  Sex: Female
  Weight: 60.75 kg

DRUGS (1)
  1. ZYRTEC [Suspect]
     Active Substance: CETIRIZINE HYDROCHLORIDE
     Indication: HYPERSENSITIVITY
     Route: 048
     Dates: start: 20120801, end: 20190413

REACTIONS (8)
  - Confusional state [None]
  - Aphasia [None]
  - Urticaria [None]
  - Pruritus [None]
  - Palpitations [None]
  - Weight increased [None]
  - Muscle twitching [None]
  - Amnesia [None]

NARRATIVE: CASE EVENT DATE: 20180304
